FAERS Safety Report 4523519-1 (Version None)
Quarter: 2004Q4

REPORT INFORMATION
  Report Type: 
  Country: None (occurrence: None)
  Receive Date: 20041117
  Receipt Date: 20040728
  Transmission Date: 20050328
  Serious: Yes (Hospitalization)
  Sender: FDA-Public Use
  Company Number: DE-JNJFOC-20040707724

PATIENT
  Age: 80 Year
  Sex: Male

DRUGS (18)
  1. LEVOFLOXACIN [Suspect]
     Indication: PNEUMONIA
     Dosage: INTRAVENOUS
     Route: 042
     Dates: start: 20040315, end: 20040316
  2. LEVOFLOXACIN [Suspect]
     Indication: PNEUMONIA
     Dosage: ORAL
     Route: 048
     Dates: start: 20040317, end: 20040318
  3. VERSED [Concomitant]
  4. ASPIRIN [Concomitant]
  5. LOPRESSOR [Concomitant]
  6. PEPCID [Concomitant]
  7. LISINOPRIL [Concomitant]
  8. METOPROLOL TARTRATE [Concomitant]
  9. MAGNESIUM SULFATE [Concomitant]
  10. LASIX [Concomitant]
  11. CAPTOPRIL [Concomitant]
  12. ZOCOR [Concomitant]
  13. LOVENOX [Concomitant]
  14. NITROGLYCERINE (GLYCERYL TRINITRATE) [Concomitant]
  15. MORPHINE SULFATE [Concomitant]
  16. PHENERGAN [Concomitant]
  17. OMNIPAQUE 140 [Concomitant]
  18. ZOFRAN [Concomitant]

REACTIONS (2)
  - RENAL FAILURE ACUTE [None]
  - VENTRICULAR TACHYCARDIA [None]
